FAERS Safety Report 5760244-3 (Version None)
Quarter: 2008Q2

REPORT INFORMATION
  Report Type: 
  Country: None (occurrence: None)
  Receive Date: 20080602
  Receipt Date: 20080506
  Transmission Date: 20081010
  Serious: Yes (Hospitalization)
  Sender: FDA-Public Use
  Company Number: FABR-1000027

PATIENT
  Sex: Male

DRUGS (8)
  1. FABRAZYME [Suspect]
     Indication: FABRY'S DISEASE
     Dosage: 1 MG/KG, Q2W, INTRAVENOUS
     Route: 042
     Dates: start: 20020528
  2. ACETYLSALICYLIC ACID SRT [Concomitant]
  3. STEROIDS (NOS) [Concomitant]
  4. METHYLPREDNISOLONE [Concomitant]
  5. ACETAMINOPHEN [Concomitant]
  6. ACE INHIBITOR NOS [Concomitant]
  7. BETA BLOCKING AGENTS [Concomitant]
  8. STATIN (NOS) [Concomitant]

REACTIONS (15)
  - AORTIC VALVE DISEASE [None]
  - AORTIC VALVE INCOMPETENCE [None]
  - CEREBRAL CALCIFICATION [None]
  - CHILLS [None]
  - DEMYELINATION [None]
  - DYSPNOEA [None]
  - EXTREMITY NECROSIS [None]
  - FOOT AMPUTATION [None]
  - INFUSION RELATED REACTION [None]
  - MITRAL VALVE DISEASE [None]
  - MITRAL VALVE INCOMPETENCE [None]
  - PYRAMIDAL TRACT SYNDROME [None]
  - QUADRIPLEGIA [None]
  - SENSORY DISTURBANCE [None]
  - SKIN NECROSIS [None]
